FAERS Safety Report 7643071-1 (Version None)
Quarter: 2011Q3

REPORT INFORMATION
  Report Type: 
  Country: None (occurrence: None)
  Receive Date: 20110728
  Receipt Date: 20110719
  Transmission Date: 20111222
  Serious: Yes (Other)
  Sender: FDA-Public Use
  Company Number: BE-ASTRAZENECA-2011SE40625

PATIENT
  Age: 85 Year
  Sex: Male

DRUGS (2)
  1. ENTOCORT EC [Suspect]
     Indication: DIARRHOEA
     Route: 048
     Dates: start: 20110601
  2. ENALAPRIL MALEATE [Concomitant]
     Indication: HYPERTENSION

REACTIONS (4)
  - RETINAL INFARCTION [None]
  - VISION BLURRED [None]
  - PRURITUS [None]
  - VISUAL IMPAIRMENT [None]
